FAERS Safety Report 17566518 (Version 8)
Quarter: 2023Q1

REPORT INFORMATION
  Report Type: Spontaneous
  Country: US (occurrence: US)
  Receive Date: 20200320
  Receipt Date: 20230125
  Transmission Date: 20230417
  Serious: Yes (Disabling, Other)
  Sender: FDA-Public Use
  Company Number: None

PATIENT
  Age: 78 Year
  Sex: Male

DRUGS (5)
  1. BEOVU [Suspect]
     Active Substance: BROLUCIZUMAB-DBLL
     Indication: Neovascular age-related macular degeneration
     Dosage: 6 MG, QMO, LEFT EYE
     Route: 047
     Dates: start: 20191211
  2. BEOVU [Suspect]
     Active Substance: BROLUCIZUMAB-DBLL
     Indication: Choroidal neovascularisation
     Dosage: 6 MG, QMO
     Route: 031
     Dates: start: 20200108
  3. BEOVU [Suspect]
     Active Substance: BROLUCIZUMAB-DBLL
     Dosage: 6 MG, QMO
     Route: 047
     Dates: start: 20200212
  4. AVASTIN [Suspect]
     Active Substance: BEVACIZUMAB
     Indication: Product used for unknown indication
     Dosage: UNK, Q5W
     Route: 031
     Dates: start: 20191211
  5. AVASTIN [Suspect]
     Active Substance: BEVACIZUMAB
     Dosage: UNK, Q5W
     Route: 031
     Dates: start: 20200108

REACTIONS (12)
  - Retinal vascular occlusion [Not Recovered/Not Resolved]
  - Retinal vasculitis [Recovered/Resolved with Sequelae]
  - Retinal ischaemia [Not Recovered/Not Resolved]
  - Retinal artery occlusion [Not Recovered/Not Resolved]
  - Visual impairment [Not Recovered/Not Resolved]
  - Uveitis [Not Recovered/Not Resolved]
  - Blindness unilateral [Not Recovered/Not Resolved]
  - Eye pain [Not Recovered/Not Resolved]
  - Ocular hyperaemia [Not Recovered/Not Resolved]
  - Photophobia [Not Recovered/Not Resolved]
  - Eye inflammation [Unknown]
  - Vision blurred [Unknown]

NARRATIVE: CASE EVENT DATE: 20200212
